FAERS Safety Report 7633030-7 (Version None)
Quarter: 2011Q3

REPORT INFORMATION
  Report Type: 
  Country: None (occurrence: None)
  Receive Date: 20110725
  Receipt Date: 20110715
  Transmission Date: 20111222
  Serious: Yes (Hospitalization)
  Sender: FDA-Public Use
  Company Number: PHHY2011BE64470

PATIENT
  Sex: Female

DRUGS (6)
  1. ZOLEDRONOC ACID [Suspect]
     Indication: OSTEOPOROSIS
     Dosage: 5 MG, UNK
     Route: 042
     Dates: start: 20100319
  2. ANTIDEPRESSANTS [Concomitant]
  3. LIPITOR [Concomitant]
  4. VITAMIN D [Concomitant]
  5. ANTIHYPERTENSIVE DRUGS [Concomitant]
  6. CALCIUM CARBONATE [Concomitant]

REACTIONS (2)
  - FEMORAL NECK FRACTURE [None]
  - FALL [None]
